FAERS Safety Report 10035775 (Version 3)
Quarter: 2014Q2

REPORT INFORMATION
  Report Type: Report from Study
  Country: JP (occurrence: JP)
  Receive Date: 20140325
  Receipt Date: 20140529
  Transmission Date: 20141212
  Serious: Yes (Other)
  Sender: FDA-Public Use
  Company Number: JP-GLAXOSMITHKLINE-B0978411A

PATIENT
  Age: 52 Year
  Sex: Female
  Weight: 62 kg

DRUGS (4)
  1. VOTRIENT 200MG [Suspect]
     Indication: SOFT TISSUE SARCOMA
     Dosage: 800MG PER DAY
     Route: 048
     Dates: start: 20130107, end: 20130217
  2. VOTRIENT 200MG [Suspect]
     Indication: SOFT TISSUE SARCOMA
     Dosage: 600MG PER DAY
     Route: 048
     Dates: start: 20130304
  3. RANMARK [Concomitant]
     Indication: METASTASES TO BONE
     Route: 058
     Dates: end: 20131216
  4. GABAPEN [Concomitant]
     Indication: NEUROPATHY PERIPHERAL
     Route: 048

REACTIONS (12)
  - Renal impairment [Not Recovered/Not Resolved]
  - Hypertension [Not Recovered/Not Resolved]
  - Nausea [Recovering/Resolving]
  - Vomiting [Recovering/Resolving]
  - Diarrhoea [Not Recovered/Not Resolved]
  - Fatigue [Recovering/Resolving]
  - Decreased appetite [Recovering/Resolving]
  - Hair colour changes [Not Recovered/Not Resolved]
  - Platelet count decreased [Not Recovered/Not Resolved]
  - Hepatic function abnormal [Not Recovered/Not Resolved]
  - White blood cell count decreased [Recovered/Resolved]
  - Brain natriuretic peptide increased [Not Recovered/Not Resolved]
